FAERS Safety Report 9314722 (Version 2)
Quarter: 2013Q3

REPORT INFORMATION
  Report Type: Spontaneous
  Country: GB (occurrence: GB)
  Receive Date: 20130529
  Receipt Date: 20130906
  Transmission Date: 20140515
  Serious: Yes (Death)
  Sender: FDA-Public Use
  Company Number: PHFR2013GB003018

PATIENT
  Age: 32 Year
  Sex: Female

DRUGS (4)
  1. CLOZARIL [Suspect]
     Indication: SCHIZOPHRENIA
     Dosage: UNK
     Route: 048
     Dates: start: 20090320
  2. CLOZARIL [Suspect]
     Dosage: 225 MG, DAILY
     Route: 048
     Dates: start: 2010
  3. PREGABALIN [Concomitant]
     Indication: ANXIETY
     Dosage: 200 MG, DAILY
     Route: 048
     Dates: start: 2010
  4. OMEPRAZOLE [Concomitant]
     Dosage: 40 MG, DAILY
     Route: 048

REACTIONS (2)
  - Death [Fatal]
  - Constipation [Unknown]
